FAERS Safety Report 20243869 (Version 2)
Quarter: 2022Q3

REPORT INFORMATION
  Report Type: Spontaneous
  Country: JP (occurrence: JP)
  Receive Date: 20211228
  Receipt Date: 20220711
  Transmission Date: 20221027
  Serious: Yes (Other)
  Sender: FDA-Public Use
  Company Number: JP-KYOWAKIRIN-2021AKK021900

PATIENT
  Age: 62 Year
  Sex: Female

DRUGS (56)
  1. PEGFILGRASTIM [Suspect]
     Active Substance: PEGFILGRASTIM
     Indication: Breast cancer
     Dosage: 3.6 MILLIGRAM, Q2WK
     Route: 058
     Dates: start: 20190731, end: 20190910
  2. DOXORUBICIN HYDROCHLORIDE [Suspect]
     Active Substance: DOXORUBICIN HYDROCHLORIDE
     Indication: Breast cancer
     Dosage: 60 MILLIGRAM, Q2WK
     Route: 041
  3. DOXORUBICIN HYDROCHLORIDE [Suspect]
     Active Substance: DOXORUBICIN HYDROCHLORIDE
     Dosage: 60 MILLIGRAM, QD
     Route: 065
     Dates: start: 20190730, end: 20190730
  4. DOXORUBICIN HYDROCHLORIDE [Suspect]
     Active Substance: DOXORUBICIN HYDROCHLORIDE
     Dosage: 60 MILLIGRAM, QD
     Route: 065
     Dates: start: 20190813, end: 20190813
  5. CYCLOPHOSPHAMIDE [Suspect]
     Active Substance: CYCLOPHOSPHAMIDE
     Indication: Breast cancer
     Dosage: 600 MILLIGRAM/SQ. METER, Q2WK
     Route: 041
  6. CYCLOPHOSPHAMIDE [Suspect]
     Active Substance: CYCLOPHOSPHAMIDE
     Dosage: 600 MILLIGRAM/SQ. METER, Q2WK
     Route: 041
  7. CYCLOPHOSPHAMIDE [Suspect]
     Active Substance: CYCLOPHOSPHAMIDE
     Dosage: 500 MILLIGRAM, QD
     Route: 065
     Dates: start: 20190730, end: 20190730
  8. CYCLOPHOSPHAMIDE [Suspect]
     Active Substance: CYCLOPHOSPHAMIDE
     Dosage: 500 MILLIGRAM, QD
     Route: 065
     Dates: start: 20190813, end: 20190813
  9. SENNOSIDE A [Concomitant]
     Active Substance: SENNOSIDE A
     Indication: Constipation
     Dosage: 1 DF, QD
     Route: 048
     Dates: start: 20190611, end: 20190611
  10. SENNOSIDE A [Concomitant]
     Active Substance: SENNOSIDE A
     Dosage: 1 DF, PRN
     Route: 048
     Dates: start: 20190614, end: 20190620
  11. SENNOSIDE A [Concomitant]
     Active Substance: SENNOSIDE A
     Dosage: 2 DF, QD
     Route: 048
     Dates: start: 20190730, end: 20190731
  12. SENNOSIDE A [Concomitant]
     Active Substance: SENNOSIDE A
     Dosage: 2 DF, QD
     Route: 048
     Dates: start: 20190813, end: 20190815
  13. SENNOSIDE A [Concomitant]
     Active Substance: SENNOSIDE A
     Dosage: 2 DF, QD
     Route: 048
     Dates: start: 20190822, end: 20190829
  14. Prostandin [Concomitant]
     Indication: Product used for unknown indication
     Dosage: 1 DF, BID
     Route: 065
     Dates: start: 20190614, end: 20190620
  15. CEFACLOR [Concomitant]
     Active Substance: CEFACLOR
     Indication: Product used for unknown indication
     Dosage: 3 DF, TID
     Route: 048
     Dates: start: 20190615, end: 20190619
  16. LOXOPROFEN [Concomitant]
     Active Substance: LOXOPROFEN
     Indication: Pain
     Dosage: 1 DF, PRN
     Route: 048
     Dates: start: 20190614, end: 20190620
  17. LOXOPROFEN [Concomitant]
     Active Substance: LOXOPROFEN
     Dosage: 1 DF, PRN
     Route: 048
     Dates: start: 20190821, end: 20190827
  18. LOXOPROFEN [Concomitant]
     Active Substance: LOXOPROFEN
     Dosage: 1 DF, PRN
     Route: 048
     Dates: start: 20190824, end: 20190830
  19. BROTIZOLAM [Concomitant]
     Active Substance: BROTIZOLAM
     Indication: Insomnia
     Dosage: 1 DF, PRN
     Route: 048
     Dates: start: 20190616, end: 20190622
  20. EMEND [Concomitant]
     Active Substance: APREPITANT
     Indication: Product used for unknown indication
     Dosage: 1 DF, QD
     Route: 048
     Dates: start: 20190730, end: 20190730
  21. EMEND [Concomitant]
     Active Substance: APREPITANT
     Dosage: 1 DF, QD
     Route: 048
     Dates: start: 20190731, end: 20190731
  22. EMEND [Concomitant]
     Active Substance: APREPITANT
     Dosage: 1 DF, QD
     Route: 048
     Dates: start: 20190813, end: 20190814
  23. DECADRON [Concomitant]
     Active Substance: DEXAMETHASONE
     Indication: Product used for unknown indication
     Dosage: 2 DF, BID
     Route: 048
     Dates: start: 20190731, end: 20190731
  24. DECADRON [Concomitant]
     Active Substance: DEXAMETHASONE
     Dosage: 16 DF, BID
     Route: 048
     Dates: start: 20190813, end: 20190815
  25. DECADRON [Concomitant]
     Active Substance: DEXAMETHASONE
     Dosage: 1 DOSAGE FORM, BID
     Route: 065
     Dates: start: 20190813, end: 20190819
  26. DECADRON [Concomitant]
     Active Substance: DEXAMETHASONE
     Dosage: 1 DOSAGE FORM, QD
     Route: 065
     Dates: start: 20190730, end: 20190730
  27. DECADRON [Concomitant]
     Active Substance: DEXAMETHASONE
     Dosage: 1 DOSAGE FORM, QD
     Route: 065
     Dates: start: 20190813, end: 20190813
  28. FAMOTIDINE [Concomitant]
     Active Substance: FAMOTIDINE
     Indication: Product used for unknown indication
     Dosage: 2 DF, BID
     Route: 048
     Dates: start: 20190730, end: 20190731
  29. FAMOTIDINE [Concomitant]
     Active Substance: FAMOTIDINE
     Dosage: 2 DF, BID
     Route: 048
     Dates: start: 20190813, end: 20190826
  30. FAMOTIDINE [Concomitant]
     Active Substance: FAMOTIDINE
     Dosage: 2 DF, BID
     Route: 048
     Dates: start: 20190821, end: 20190826
  31. FAMOTIDINE [Concomitant]
     Active Substance: FAMOTIDINE
     Dosage: 2 DF, BID
     Route: 048
     Dates: start: 20190822, end: 20190907
  32. AZ COMBINATION [Concomitant]
     Indication: Product used for unknown indication
     Dosage: 6 DF, TID
     Route: 048
     Dates: start: 20190730, end: 20190805
  33. AZ COMBINATION [Concomitant]
     Dosage: 6 DF, TID
     Route: 048
     Dates: start: 20190813, end: 20190819
  34. AZ COMBINATION [Concomitant]
     Dosage: 6 DF, TID
     Route: 048
     Dates: start: 20190821, end: 20190827
  35. AZ COMBINATION [Concomitant]
     Dosage: 6 DF, TID
     Route: 048
     Dates: start: 20190822, end: 20190828
  36. AZ COMBINATION [Concomitant]
     Dosage: 2 DOSAGE FORM, QD
     Route: 065
     Dates: start: 20190730, end: 20190730
  37. AZ COMBINATION [Concomitant]
     Dosage: 4 DOSAGE FORM, QD
     Route: 065
     Dates: start: 20190813, end: 20190813
  38. METOCLOPRAMIDE [Concomitant]
     Active Substance: METOCLOPRAMIDE
     Indication: Product used for unknown indication
     Dosage: 3 DF, TID
     Route: 048
     Dates: start: 20190730, end: 20190731
  39. METOCLOPRAMIDE [Concomitant]
     Active Substance: METOCLOPRAMIDE
     Dosage: 3 DF, TID
     Route: 048
     Dates: start: 20190813, end: 20190819
  40. METOCLOPRAMIDE [Concomitant]
     Active Substance: METOCLOPRAMIDE
     Dosage: 3 DF, TID
     Route: 048
     Dates: start: 20190822, end: 20190824
  41. LEVOFLOXACIN [Concomitant]
     Active Substance: LEVOFLOXACIN
     Indication: Product used for unknown indication
     Dosage: 1 DF, QD
     Route: 048
     Dates: start: 20190813, end: 20190819
  42. LEVOFLOXACIN [Concomitant]
     Active Substance: LEVOFLOXACIN
     Dosage: 1 DF, QD
     Route: 048
     Dates: start: 20190821, end: 20190824
  43. LEVOFLOXACIN [Concomitant]
     Active Substance: LEVOFLOXACIN
     Dosage: 1 DF, QD
     Route: 048
     Dates: start: 20190824, end: 20190830
  44. ZOPICLONE [Concomitant]
     Active Substance: ZOPICLONE
     Indication: Insomnia
     Dosage: 1 DF, PRN
     Route: 048
     Dates: start: 20190813, end: 20190819
  45. ZOPICLONE [Concomitant]
     Active Substance: ZOPICLONE
     Dosage: 1 DF, PRN
     Route: 048
     Dates: start: 20190822, end: 20190828
  46. LYRICA [Concomitant]
     Active Substance: PREGABALIN
     Indication: Product used for unknown indication
     Dosage: 2 DF, BID
     Route: 048
     Dates: start: 20190823, end: 20190827
  47. LYRICA [Concomitant]
     Active Substance: PREGABALIN
     Dosage: 2 DF, BID
     Route: 048
     Dates: start: 20190827, end: 20190902
  48. EDOXABAN TOSYLATE [Concomitant]
     Active Substance: EDOXABAN TOSYLATE
     Indication: Product used for unknown indication
     Dosage: 1 DF, QD
     Route: 048
     Dates: start: 20190819, end: 20190826
  49. EDOXABAN TOSYLATE [Concomitant]
     Active Substance: EDOXABAN TOSYLATE
     Dosage: 1 DF, QD
     Route: 048
     Dates: start: 20190823, end: 20190827
  50. EDOXABAN TOSYLATE [Concomitant]
     Active Substance: EDOXABAN TOSYLATE
     Dosage: 1 DF, QD
     Route: 048
     Dates: start: 20190826, end: 20190908
  51. EDOXABAN TOSYLATE [Concomitant]
     Active Substance: EDOXABAN TOSYLATE
     Dosage: 1 DF, QD
     Route: 048
     Dates: start: 20190908, end: 20190921
  52. NEXIUM [Concomitant]
     Active Substance: ESOMEPRAZOLE MAGNESIUM
     Indication: Product used for unknown indication
     Dosage: 1 DF, QD
     Route: 048
     Dates: start: 20190828, end: 20190903
  53. NEXIUM [Concomitant]
     Active Substance: ESOMEPRAZOLE MAGNESIUM
     Dosage: 1 DF, QD
     Route: 048
     Dates: start: 20190903, end: 20190910
  54. NEXIUM [Concomitant]
     Active Substance: ESOMEPRAZOLE MAGNESIUM
     Dosage: 1 DF, QD
     Route: 048
     Dates: start: 20190910, end: 20190921
  55. ALOXI [Concomitant]
     Active Substance: PALONOSETRON HYDROCHLORIDE
     Indication: Product used for unknown indication
     Dosage: 1 DF, QD
     Route: 042
     Dates: start: 20190730, end: 20190730
  56. ALOXI [Concomitant]
     Active Substance: PALONOSETRON HYDROCHLORIDE
     Dosage: 1 DF, QD
     Route: 042
     Dates: start: 20190813, end: 20190813

REACTIONS (1)
  - Pulmonary toxicity [Recovered/Resolved]

NARRATIVE: CASE EVENT DATE: 20190910
